FAERS Safety Report 9236227 (Version 2)
Quarter: 2013Q3

REPORT INFORMATION
  Report Type: Spontaneous
  Country: US (occurrence: US)
  Receive Date: 20130417
  Receipt Date: 20130808
  Transmission Date: 20140515
  Serious: Yes (Hospitalization, Other)
  Sender: FDA-Public Use
  Company Number: US-BAYER-2013-048245

PATIENT
  Age: 33 Year
  Sex: Female

DRUGS (10)
  1. YAZ [Suspect]
     Dosage: UNK
     Dates: start: 200703
  2. YASMIN [Suspect]
     Dosage: UNK
     Dates: start: 200703
  3. AVONEX [Concomitant]
     Indication: MULTIPLE SCLEROSIS
  4. PHENERGAN [Concomitant]
  5. SYNTHROID [Concomitant]
  6. PREDNISONE [Concomitant]
     Indication: CARPAL TUNNEL SYNDROME
     Dosage: UNK
     Dates: start: 20071107
  7. FLEXERIL [Concomitant]
  8. AMANTADINE [Concomitant]
  9. SINGULAIR [Concomitant]
  10. CYCLOBENZAPRINE [Concomitant]

REACTIONS (7)
  - Deep vein thrombosis [Recovered/Resolved]
  - Deep vein thrombosis [Recovered/Resolved]
  - Pulmonary embolism [None]
  - Pain [Recovered/Resolved]
  - Injury [Recovered/Resolved]
  - Pain [None]
  - Fear of disease [None]
